FAERS Safety Report 9016651 (Version 3)
Quarter: 2013Q2

REPORT INFORMATION
  Report Type: Spontaneous
  Country: JP (occurrence: JP)
  Receive Date: 20130117
  Receipt Date: 20130403
  Transmission Date: 20140414
  Serious: Yes (Hospitalization)
  Sender: FDA-Public Use
  Company Number: JP-GE HEALTHCARE MEDICAL DIAGNOSTICS-OMPQ-NO-1301S-0031

PATIENT
  Sex: Female

DRUGS (17)
  1. OMNIPAQUE [Suspect]
     Indication: PRODUCT USED FOR UNKNOWN INDICATION
     Dosage: DOSE NOT REPORTED
     Route: 065
     Dates: start: 201101, end: 201101
  2. OMNIPAQUE [Suspect]
     Indication: DIAGNOSTIC PROCEDURE
     Dosage: DOSE NOT REPORTED
     Route: 065
     Dates: start: 20130214, end: 20130214
  3. COVERSYL [Concomitant]
     Indication: HYPERTENSION
     Route: 065
  4. COVERSYL [Concomitant]
     Indication: OSTEOPOROSIS
  5. PREDONINE [Concomitant]
     Indication: RHEUMATOID ARTHRITIS
     Route: 065
  6. AMLODIN [Concomitant]
     Indication: HYPERTENSION
     Route: 065
  7. AMLODIN [Concomitant]
     Indication: OSTEOPOROSIS
  8. NEXIUM [Concomitant]
     Indication: GASTROOESOPHAGEAL REFLUX DISEASE
     Route: 065
  9. RASILEZ [Concomitant]
     Indication: HYPERTENSION
     Route: 065
  10. RASILEZ [Concomitant]
     Indication: OSTEOPOROSIS
  11. ARTIST [Concomitant]
     Indication: HYPERTENSION
     Route: 065
  12. ARTIST [Concomitant]
     Indication: OSTEOPOROSIS
  13. FEBURIC [Concomitant]
     Indication: HYPERURICAEMIA
     Route: 065
  14. EDIROL [Concomitant]
     Indication: HYPERTENSION
     Route: 065
  15. EDIROL [Concomitant]
     Indication: OSTEOPOROSIS
  16. GASTROM [Concomitant]
     Indication: GASTROOESOPHAGEAL REFLUX DISEASE
     Route: 065
  17. SELBEX [Concomitant]
     Indication: GASTROOESOPHAGEAL REFLUX DISEASE
     Route: 065

REACTIONS (1)
  - Stevens-Johnson syndrome [Recovered/Resolved]
